APPROVED DRUG PRODUCT: ANASTROZOLE
Active Ingredient: ANASTROZOLE
Strength: 1MG
Dosage Form/Route: TABLET;ORAL
Application: A079220 | Product #001 | TE Code: AB
Applicant: NATCO PHARMA LTD
Approved: Jun 28, 2010 | RLD: No | RS: No | Type: RX